FAERS Safety Report 13857550 (Version 1)
Quarter: 2017Q3

REPORT INFORMATION
  Report Type: Spontaneous
  Country: DE (occurrence: DE)
  Receive Date: 20170811
  Receipt Date: 20170811
  Transmission Date: 20171127
  Serious: Yes (Hospitalization, Other)
  Sender: FDA-Public Use
  Company Number: GXKR2017DE004021

PATIENT
  Age: 36 Year
  Sex: Female
  Weight: 59 kg

DRUGS (3)
  1. MIRTAZAPIN [Concomitant]
     Active Substance: MIRTAZAPINE
     Indication: DEPRESSION
     Dosage: 15 MG, UNK (FOR ABOUT 10 YEARS)
     Route: 065
     Dates: start: 2007
  2. ZOPICLON [Concomitant]
     Active Substance: ZOPICLONE
     Indication: SLEEP DISORDER
     Dosage: FROM TIME TO TIME
     Route: 065
  3. CIPROFLOXACIN 1A PHARMA [Suspect]
     Active Substance: CIPROFLOXACIN
     Indication: ESCHERICHIA INFECTION
     Dosage: 500MG, TWICE DAILY
     Route: 048
     Dates: start: 20170629, end: 20170709

REACTIONS (9)
  - Palpitations [Unknown]
  - Insomnia [Unknown]
  - Paraesthesia [Unknown]
  - Sensory disturbance [Unknown]
  - Dyspnoea [Unknown]
  - Angina pectoris [Unknown]
  - Muscular weakness [Unknown]
  - Groin pain [Recovered/Resolved]
  - Depressive symptom [Unknown]

NARRATIVE: CASE EVENT DATE: 2017
